FAERS Safety Report 5857623-2 (Version None)
Quarter: 2008Q3

REPORT INFORMATION
  Report Type: 
  Country: None (occurrence: None)
  Receive Date: 20080826
  Receipt Date: 20080813
  Transmission Date: 20090109
  Serious: No
  Sender: FDA-Public Use
  Company Number: US-BAYER-200825464NA

PATIENT
  Age: 32 Year
  Sex: Female
  Weight: 61 kg

DRUGS (1)
  1. MIRENA [Suspect]
     Indication: CONTRACEPTION
     Route: 015
     Dates: start: 20030701, end: 20080617

REACTIONS (5)
  - AMENORRHOEA [None]
  - DERMATITIS CONTACT [None]
  - MENSTRUATION IRREGULAR [None]
  - PROCEDURAL PAIN [None]
  - URINARY TRACT INFECTION [None]
